FAERS Safety Report 17875576 (Version 1)
Quarter: 2020Q2

REPORT INFORMATION
  Report Type: Spontaneous
  Country: UZ (occurrence: UZ)
  Receive Date: 20200609
  Receipt Date: 20200609
  Transmission Date: 20200714
  Serious: Yes (Other)
  Sender: FDA-Public Use
  Company Number: UZ-JNJFOC-20200420686

PATIENT
  Age: 59 Year
  Sex: Female
  Weight: 85 kg

DRUGS (13)
  1. LEVOFLOXACIN. [Suspect]
     Active Substance: LEVOFLOXACIN
     Indication: TUBERCULOSIS
     Dates: start: 20200207, end: 20200411
  2. LINEZOLID. [Suspect]
     Active Substance: LINEZOLID
     Indication: TUBERCULOSIS
     Route: 065
     Dates: start: 20200207, end: 20200411
  3. ATORIS [Concomitant]
     Active Substance: ATORVASTATIN CALCIUM
     Indication: PRODUCT USED FOR UNKNOWN INDICATION
     Route: 065
  4. SIRTURO [Suspect]
     Active Substance: BEDAQUILINE FUMARATE
     Dates: start: 20200525
  5. LINEZOLID. [Suspect]
     Active Substance: LINEZOLID
     Route: 065
     Dates: start: 20200420
  6. INSULIN [Concomitant]
     Active Substance: INSULIN NOS
     Indication: TYPE 2 DIABETES MELLITUS
  7. CLOFAZIMINE [Suspect]
     Active Substance: CLOFAZIMINE
     Dates: start: 20200420
  8. BISOPROLOL                         /00802602/ [Concomitant]
     Active Substance: BISOPROLOL
     Indication: PRODUCT USED FOR UNKNOWN INDICATION
     Route: 065
  9. CLOFAZIMINE [Suspect]
     Active Substance: CLOFAZIMINE
     Indication: TUBERCULOSIS
     Dates: start: 20200207, end: 20200411
  10. SIRTURO [Suspect]
     Active Substance: BEDAQUILINE FUMARATE
     Indication: TUBERCULOSIS
     Dates: start: 20200207, end: 20200411
  11. LEVOFLOXACIN. [Suspect]
     Active Substance: LEVOFLOXACIN
     Dates: start: 20200420
  12. CYCLOSERINE. [Suspect]
     Active Substance: CYCLOSERINE
     Indication: TUBERCULOSIS
     Route: 065
     Dates: start: 20200207, end: 20200411
  13. CYCLOSERINE. [Suspect]
     Active Substance: CYCLOSERINE
     Route: 065
     Dates: start: 20200420

REACTIONS (4)
  - Productive cough [Unknown]
  - Electrocardiogram QT prolonged [Recovering/Resolving]
  - Hypertension [Unknown]
  - Myocardial ischaemia [Unknown]

NARRATIVE: CASE EVENT DATE: 202004
